FAERS Safety Report 15602297 (Version 3)
Quarter: 2018Q4

REPORT INFORMATION
  Report Type: Report from Study
  Country: ES (occurrence: ES)
  Receive Date: 20181109
  Receipt Date: 20181221
  Transmission Date: 20190205
  Serious: Yes (Hospitalization, Other)
  Sender: FDA-Public Use
  Company Number: ES-ROCHE-2210057

PATIENT
  Age: 47 Year
  Sex: Female
  Weight: 57.6 kg

DRUGS (3)
  1. RO 7082859 (CD20/C3 T-CELL BISPECIFIC MAB) [Suspect]
     Active Substance: INVESTIGATIONAL PRODUCT
     Indication: B-CELL LYMPHOMA
     Dosage: DATE OF MOST RECENT DOSE OF RO7082859 PRIOR TO FIRST EPISODE OF CRS ONSET 300 MICROGRAM IS 31/OCT/20
     Route: 042
     Dates: start: 20181010
  2. ATEZOLIZUMAB. [Suspect]
     Active Substance: ATEZOLIZUMAB
     Indication: B-CELL LYMPHOMA
     Dosage: START TIME OF THE DOSE OF ATEZOLIZUMAB PRIOR TO FIRST EPISODE OF CRS ONSET ON 31/OCT/2018 IS 9:10?DA
     Route: 042
     Dates: start: 20181031
  3. OBINUTUZUMAB. [Suspect]
     Active Substance: OBINUTUZUMAB
     Indication: B-CELL LYMPHOMA
     Dosage: 7 DAYS BEFORE THE FIRST DOSE OF RO7082859?DATE OF MOST RECENT DOSE OF OBINUTUZUMAB PRIOR TO AE ONSET
     Route: 042
     Dates: start: 20181003

REACTIONS (2)
  - Cytokine release syndrome [Recovered/Resolved]
  - Pyrexia [Unknown]

NARRATIVE: CASE EVENT DATE: 20181101
